FAERS Safety Report 7155826-0 (Version None)
Quarter: 2010Q4

REPORT INFORMATION
  Report Type: 
  Country: None (occurrence: None)
  Receive Date: 20101123
  Receipt Date: 20100803
  Transmission Date: 20110411
  Serious: No
  Sender: FDA-Public Use
  Company Number: 010078

PATIENT
  Sex: Male

DRUGS (2)
  1. CIMZIA [Suspect]
     Indication: CROHN'S DISEASE
     Dosage: (400 MG 1X/MONTH SUBCUTANEOUS), (400 MG, 1X/28 DAYS SUBCUTANEOUS)
     Route: 058
     Dates: start: 20090313
  2. CIMZIA [Suspect]

REACTIONS (5)
  - ABDOMINAL PAIN [None]
  - CONSTIPATION [None]
  - FATIGUE [None]
  - FREQUENT BOWEL MOVEMENTS [None]
  - SINUS CONGESTION [None]
